FAERS Safety Report 6872239-7 (Version None)
Quarter: 2010Q3

REPORT INFORMATION
  Report Type: 
  Country: None (occurrence: None)
  Receive Date: 20100723
  Receipt Date: 20100701
  Transmission Date: 20110219
  Serious: No
  Sender: FDA-Public Use
  Company Number: US-ELI_LILLY_AND_COMPANY-US201007001076

PATIENT
  Sex: Male

DRUGS (1)
  1. CIALIS [Suspect]
     Dosage: UNK, DAILY (1/D)
     Route: 065

REACTIONS (5)
  - ARTHRITIS [None]
  - BACK PAIN [None]
  - DIABETES MELLITUS [None]
  - DRUG INEFFECTIVE [None]
  - VISUAL IMPAIRMENT [None]
